FAERS Safety Report 11184761 (Version 2)
Quarter: 2015Q4

REPORT INFORMATION
  Report Type: Report from Study
  Country: US (occurrence: US)
  Receive Date: 20150612
  Receipt Date: 20151130
  Transmission Date: 20160304
  Serious: Yes (Other)
  Sender: FDA-Public Use
  Company Number: US-SANOFI-AVENTIS-2013SA058685

PATIENT
  Age: 60 Year
  Sex: Female
  Weight: 99.79 kg

DRUGS (29)
  1. QUINAPRIL [Concomitant]
     Active Substance: QUINAPRIL\QUINAPRIL HYDROCHLORIDE
  2. PROAIR HFA [Concomitant]
     Active Substance: ALBUTEROL SULFATE
  3. AUBAGIO [Suspect]
     Active Substance: TERIFLUNOMIDE
     Indication: MULTIPLE SCLEROSIS
     Dosage: PRODUCT STARTED ON 13-MAY-2013.
     Route: 048
     Dates: start: 20130513
  4. SINGULAIR [Concomitant]
     Active Substance: MONTELUKAST SODIUM
  5. CITRACAL + D [Concomitant]
     Active Substance: CALCIUM CITRATE\VITAMIN D
  6. LEVSIN [Concomitant]
     Active Substance: HYOSCYAMINE SULFATE
  7. AUBAGIO [Suspect]
     Active Substance: TERIFLUNOMIDE
     Indication: MULTIPLE SCLEROSIS
     Dosage: PRODUCT STARTED ON 13-MAY-2013.
     Route: 048
     Dates: start: 20130513
  8. AUBAGIO [Suspect]
     Active Substance: TERIFLUNOMIDE
     Indication: MULTIPLE SCLEROSIS
     Dosage: PRODUCT STARTED ON 13-MAY-2013.
     Route: 048
  9. CYMBALTA [Concomitant]
     Active Substance: DULOXETINE HYDROCHLORIDE
  10. FLEXERIL [Concomitant]
     Active Substance: CYCLOBENZAPRINE HYDROCHLORIDE
  11. TOPROL XL [Concomitant]
     Active Substance: METOPROLOL SUCCINATE
  12. PROTONIX [Concomitant]
     Active Substance: PANTOPRAZOLE SODIUM
  13. LEVOTHYROXINE. [Concomitant]
     Active Substance: LEVOTHYROXINE
  14. TRILIPIX [Concomitant]
     Active Substance: FENOFIBRIC ACID
  15. FLONASE [Concomitant]
     Active Substance: FLUTICASONE PROPIONATE
  16. VENTOLIN [Concomitant]
     Active Substance: ALBUTEROL SULFATE
  17. METOPROLOL [Concomitant]
     Active Substance: METOPROLOL
  18. PRAVASTATIN [Concomitant]
     Active Substance: PRAVASTATIN\PRAVASTATIN SODIUM
  19. AMANTADINE [Concomitant]
     Active Substance: AMANTADINE
  20. XANAX [Concomitant]
     Active Substance: ALPRAZOLAM
  21. TRIAMTERENE. [Concomitant]
     Active Substance: TRIAMTERENE
  22. ZYRTEC [Concomitant]
     Active Substance: CETIRIZINE HYDROCHLORIDE
  23. METAMUCIL [Concomitant]
     Active Substance: PLANTAGO SEED
  24. METFORMIN [Concomitant]
     Active Substance: METFORMIN HYDROCHLORIDE
  25. AMLODIPINE [Concomitant]
     Active Substance: AMLODIPINE BESYLATE
  26. ALBUTEROL. [Concomitant]
     Active Substance: ALBUTEROL
  27. MINERALS NOS/VITAMINS NOS [Concomitant]
  28. HYDROCHLOROTHIAZIDE WITH TRIAMTERENE [Concomitant]
     Active Substance: HYDROCHLOROTHIAZIDE\TRIAMTERENE
  29. ABILIFY [Concomitant]
     Active Substance: ARIPIPRAZOLE

REACTIONS (13)
  - Rectal haemorrhage [Unknown]
  - Condition aggravated [Unknown]
  - Pain in extremity [Not Recovered/Not Resolved]
  - Fatigue [Unknown]
  - Feeling abnormal [Recovering/Resolving]
  - Night sweats [Not Recovered/Not Resolved]
  - Depression [Unknown]
  - Nausea [Unknown]
  - Drug dose omission [Unknown]
  - Discomfort [Unknown]
  - Diarrhoea [Unknown]
  - Alopecia [Not Recovered/Not Resolved]
  - Abdominal pain upper [Recovered/Resolved]

NARRATIVE: CASE EVENT DATE: 2014
